FAERS Safety Report 9657910 (Version 1)
Quarter: 2013Q4

REPORT INFORMATION
  Report Type: Spontaneous
  Country: US (occurrence: None)
  Receive Date: 20131029
  Receipt Date: 20131029
  Transmission Date: 20140711
  Serious: Yes (Hospitalization)
  Sender: FDA-Public Use
  Company Number: SP07148

PATIENT
  Age: 30 Year
  Sex: Male

DRUGS (3)
  1. APRISO [Suspect]
     Indication: CROHN^S DISEASE
     Route: 048
     Dates: start: 201208
  2. APRISO [Suspect]
     Indication: COLITIS ULCERATIVE
     Route: 048
     Dates: start: 201208
  3. DICYCLOMINE (20 MILLIGRAM) [Concomitant]

REACTIONS (2)
  - Depression [None]
  - Schizophrenia [None]
